FAERS Safety Report 7132761-5 (Version None)
Quarter: 2010Q4

REPORT INFORMATION
  Report Type: 
  Country: None (occurrence: None)
  Receive Date: 20101202
  Receipt Date: 20101122
  Transmission Date: 20110411
  Serious: No
  Sender: FDA-Public Use
  Company Number: US-PFIZER INC-2010155199

PATIENT
  Sex: Female
  Weight: 73 kg

DRUGS (3)
  1. PRISTIQ [Suspect]
     Indication: DEPRESSION
     Dosage: 50 MG, 1X/DAY
     Route: 048
     Dates: start: 20101001
  2. NICOTINE [Concomitant]
     Indication: SMOKING CESSATION THERAPY
  3. SIMVASTATIN [Concomitant]
     Dosage: UNK

REACTIONS (2)
  - ENERGY INCREASED [None]
  - NERVOUSNESS [None]
